FAERS Safety Report 24180939 (Version 2)
Quarter: 2024Q3

REPORT INFORMATION
  Report Type: Spontaneous
  Country: US (occurrence: US)
  Receive Date: 20240806
  Receipt Date: 20240906
  Transmission Date: 20241016
  Serious: Yes (Other)
  Sender: MERCK
  Company Number: US-009507513-2407USA008234

PATIENT
  Age: 84 Year
  Sex: Female
  Weight: 39.456 kg

DRUGS (16)
  1. KEYTRUDA [Suspect]
     Active Substance: PEMBROLIZUMAB
     Indication: Lung adenocarcinoma
     Dosage: 200 MILLIGRAM, Q3W
     Route: 042
     Dates: start: 20200220, end: 20200523
  2. KEYTRUDA [Suspect]
     Active Substance: PEMBROLIZUMAB
     Dosage: UNK
     Dates: start: 20230524, end: 20240523
  3. XGEVA [Suspect]
     Active Substance: DENOSUMAB
  4. FOSAMAX [Concomitant]
     Active Substance: ALENDRONATE SODIUM
     Dosage: TAKE IN AM ON EMPTY STOMACH WITH FULL GLASS OF WATER. DON^T LAYDOWN FOR 30 MIN AFTER.
  5. LAC-HYDRIN [Concomitant]
     Active Substance: AMMONIUM LACTATE
     Indication: Dry skin
     Dosage: 1 APPLICATION AS NEEDED
     Route: 061
  6. BREO ELLIPTA [Concomitant]
     Active Substance: FLUTICASONE FUROATE\VILANTEROL TRIFENATATE
     Dosage: INHALE 1 PUFF INTO THE LUNGS DAILY
  7. ZYRTEC [Concomitant]
     Active Substance: CETIRIZINE HYDROCHLORIDE
     Dosage: 10 MILLIGRAM, QD
     Route: 048
  8. VITAMIN D3 [Concomitant]
     Active Substance: CHOLECALCIFEROL
     Dosage: 2000 INTERNATIONAL UNIT, QD
     Route: 048
  9. VOLTAREN-SDU [Concomitant]
     Dosage: 2 GRAM, Q6H
     Route: 061
  10. FERGON [Concomitant]
     Active Substance: FERROUS GLUCONATE
     Dosage: 324 MILLIGRAM, QAM
     Route: 048
  11. LIDEX [Concomitant]
     Active Substance: FLUOCINONIDE
     Dosage: APPLY TO AFFECT 60 GRAM, BID
  12. OCUVITE MAX [Concomitant]
     Route: 048
  13. ALEVE [Concomitant]
     Active Substance: NAPROXEN SODIUM
     Dosage: 220 MILLIGRAM, QD
     Route: 048
  14. OMEPRAZOLE MAGNESIUM [Concomitant]
     Active Substance: OMEPRAZOLE MAGNESIUM
     Indication: Antacid therapy
     Dosage: USES AS NEEDED WHEN SHE TAKES ALEVE
     Route: 048
  15. PERCOCET [Concomitant]
     Active Substance: ACETAMINOPHEN\OXYCODONE HYDROCHLORIDE
     Indication: Pain
     Dosage: 1 DOSAGE FORM, Q12H
     Route: 048
  16. DESYREL [Concomitant]
     Active Substance: TRAZODONE HYDROCHLORIDE
     Dosage: 1 DOSAGE FORM, QPM
     Route: 048

REACTIONS (33)
  - Malignant neoplasm progression [Unknown]
  - Lung adenocarcinoma recurrent [Unknown]
  - Dermoid cyst [Unknown]
  - Pneumothorax [Unknown]
  - Renal impairment [Unknown]
  - Haemothorax [Unknown]
  - Arteriosclerosis coronary artery [Unknown]
  - Aortic arteriosclerosis [Unknown]
  - Infusion site extravasation [Recovered/Resolved]
  - Poor venous access [Unknown]
  - Blood glucose increased [Unknown]
  - Blood urea increased [Unknown]
  - Protein total decreased [Unknown]
  - Iron deficiency anaemia [Unknown]
  - Lymphocyte percentage decreased [Unknown]
  - White blood cell count increased [Unknown]
  - Neutrophil percentage increased [Unknown]
  - Actinic keratosis [Unknown]
  - Osteoporosis [Unknown]
  - Seborrhoeic keratosis [Unknown]
  - Neck pain [Unknown]
  - Lentigo [Unknown]
  - Bone density decreased [Unknown]
  - Vitamin D deficiency [Unknown]
  - Arthralgia [Unknown]
  - Rotator cuff syndrome [Unknown]
  - Adrenal mass [Unknown]
  - COVID-19 [Unknown]
  - Tumour inflammation [Unknown]
  - Serum ferritin increased [Unknown]
  - Mitral valve calcification [Unknown]
  - Biliary cyst [Unknown]
  - Incorrect dose administered [Unknown]

NARRATIVE: CASE EVENT DATE: 20220225
